FAERS Safety Report 4884445-1 (Version None)
Quarter: 2006Q1

REPORT INFORMATION
  Report Type: 
  Country: None (occurrence: None)
  Receive Date: 20060119
  Receipt Date: 20060113
  Transmission Date: 20060701
  Serious: Yes (Hospitalization)
  Sender: FDA-Public Use
  Company Number: CH-SOLVAY-00206000204

PATIENT
  Age: 94 Year
  Sex: Female

DRUGS (4)
  1. PLAVIX [Concomitant]
     Indication: ILL-DEFINED DISORDER
     Dosage: DAILY DOSE:  UNKNOWN
     Route: 048
  2. COVERSUM [Suspect]
     Indication: ILL-DEFINED DISORDER
     Dosage: DAILY DOSE: 8 MILLIGRAM(S)
     Route: 048
     Dates: end: 20051027
  3. LOPRESSOR [Suspect]
     Indication: ILL-DEFINED DISORDER
     Dosage: DAILY DOSE: 100 MILLIGRAM(S)
     Route: 048
     Dates: end: 20051027
  4. ADALAT [Suspect]
     Indication: ILL-DEFINED DISORDER
     Dosage: DAILY DOSE: 2 DOSAGE FORM
     Route: 048
     Dates: end: 20051027

REACTIONS (3)
  - BRADYCARDIA [None]
  - SOMNOLENCE [None]
  - SYNCOPE [None]
